FAERS Safety Report 25869595 (Version 1)
Quarter: 2025Q4

REPORT INFORMATION
  Report Type: Spontaneous
  Country: BR (occurrence: BR)
  Receive Date: 20251001
  Receipt Date: 20251001
  Transmission Date: 20260117
  Serious: Yes (Other)
  Sender: NOVARTIS
  Company Number: BR-002147023-NVSC2025BR147318

PATIENT

DRUGS (1)
  1. NILOTINIB [Suspect]
     Active Substance: NILOTINIB
     Indication: Product used for unknown indication
     Dosage: 400 MG 12H/12H
     Route: 065

REACTIONS (10)
  - Myocardial ischaemia [Unknown]
  - Mitral valve incompetence [Unknown]
  - Ventricular dysfunction [Unknown]
  - Aortic injury [Unknown]
  - Angina pectoris [Unknown]
  - Cytogenetic analysis abnormal [Unknown]
  - Atrial enlargement [Unknown]
  - Sinus tachycardia [Unknown]
  - Left ventricular hypertrophy [Unknown]
  - Diastolic dysfunction [Unknown]

NARRATIVE: CASE EVENT DATE: 20210101
